FAERS Safety Report 24198208 (Version 1)
Quarter: 2024Q3

REPORT INFORMATION
  Report Type: Spontaneous
  Country: US (occurrence: US)
  Receive Date: 20240812
  Receipt Date: 20240812
  Transmission Date: 20241016
  Serious: No
  Sender: SANOFI AVENTIS
  Company Number: US-SA-SAC20240801000736

PATIENT
  Age: 49 Year
  Sex: Female

DRUGS (2)
  1. TZIELD [Suspect]
     Active Substance: TEPLIZUMAB-MZWV
     Indication: Diabetes prophylaxis
     Dosage: UNK
     Route: 042
     Dates: start: 20240730, end: 20240730
  2. TZIELD [Suspect]
     Active Substance: TEPLIZUMAB-MZWV
     Dosage: UNK; 310 MICROGRAMS VS 205
     Route: 042
     Dates: start: 20240731

REACTIONS (2)
  - Blood pressure increased [Recovered/Resolved with Sequelae]
  - Incorrect dose administered [Unknown]

NARRATIVE: CASE EVENT DATE: 20240731
